FAERS Safety Report 8199841-7 (Version None)
Quarter: 2012Q1

REPORT INFORMATION
  Report Type: 
  Country: None (occurrence: None)
  Receive Date: 20120312
  Receipt Date: 20120306
  Transmission Date: 20120608
  Serious: No
  Sender: FDA-Public Use
  Company Number: US-BIOGENIDEC-2011BI038371

PATIENT
  Age: 54 Year
  Sex: Female

DRUGS (1)
  1. TYSABRI [Suspect]
     Indication: MULTIPLE SCLEROSIS
     Route: 042
     Dates: start: 20110511, end: 20111227

REACTIONS (9)
  - MULTIPLE SCLEROSIS [None]
  - MALAISE [None]
  - GAIT DISTURBANCE [None]
  - DYSSTASIA [None]
  - SPEECH DISORDER [None]
  - FATIGUE [None]
  - DRUG INEFFECTIVE [None]
  - FEELING ABNORMAL [None]
  - ALOPECIA [None]
